FAERS Safety Report 15465639 (Version 2)
Quarter: 2018Q4

REPORT INFORMATION
  Report Type: Spontaneous
  Country: US (occurrence: US)
  Receive Date: 20181004
  Receipt Date: 20181115
  Transmission Date: 20190204
  Serious: No
  Sender: FDA-Public Use
  Company Number: US-GLAXOSMITHKLINE-US2018177063

PATIENT
  Age: 72 Year
  Sex: Male
  Weight: 100.23 kg

DRUGS (2)
  1. FLONASE [Concomitant]
     Active Substance: FLUTICASONE PROPIONATE
     Indication: SECRETION DISCHARGE
  2. TRELEGY ELLIPTA [Suspect]
     Active Substance: FLUTICASONE FUROATE\UMECLIDINIUM BROMIDE\VILANTEROL TRIFENATATE
     Indication: PRODUCT USED FOR UNKNOWN INDICATION
     Dosage: 1 PUFF(S), 1D
     Route: 055
     Dates: start: 20180928, end: 20181012

REACTIONS (3)
  - Intercepted medication error [Unknown]
  - Urine output decreased [Unknown]
  - Product label confusion [Unknown]

NARRATIVE: CASE EVENT DATE: 20180928
